FAERS Safety Report 7086306-9 (Version None)
Quarter: 2010Q4

REPORT INFORMATION
  Report Type: 
  Country: None (occurrence: None)
  Receive Date: 20101105
  Receipt Date: 20101027
  Transmission Date: 20110411
  Serious: Yes (Hospitalization)
  Sender: FDA-Public Use
  Company Number: US-JNJFOC-20100907189

PATIENT
  Sex: Male
  Weight: 51.7 kg

DRUGS (7)
  1. REMICADE [Suspect]
     Indication: CROHN'S DISEASE
     Route: 042
  2. ENTOCORT EC [Concomitant]
     Route: 048
  3. PREVACID [Concomitant]
     Route: 048
  4. MESALAMINE [Concomitant]
     Indication: CROHN'S DISEASE
     Route: 048
  5. PREDNISOLONE [Concomitant]
  6. LACTOBACILLUS [Concomitant]
     Route: 048
  7. FLUCONAZOLE [Concomitant]
     Route: 048

REACTIONS (1)
  - ABDOMINAL PAIN [None]
